FAERS Safety Report 8371374-4 (Version None)
Quarter: 2012Q2

REPORT INFORMATION
  Report Type: 
  Country: None (occurrence: None)
  Receive Date: 20120518
  Receipt Date: 20120515
  Transmission Date: 20120825
  Serious: Yes (Death, Other)
  Sender: FDA-Public Use
  Company Number: US-CELGENEUS-163-21880-12020867

PATIENT
  Sex: Female

DRUGS (1)
  1. REVLIMID [Suspect]
     Dosage: 5 MILLIGRAM
     Route: 048
     Dates: start: 20120110

REACTIONS (11)
  - DIARRHOEA [None]
  - PRURITUS [None]
  - CHEST PAIN [None]
  - FATIGUE [None]
  - ACUTE MYELOID LEUKAEMIA [None]
  - DYSPNOEA [None]
  - SINUSITIS [None]
  - THROMBOCYTOPENIA [None]
  - MYELODYSPLASTIC SYNDROME [None]
  - HAEMORRHAGE [None]
  - NIGHT SWEATS [None]
